FAERS Safety Report 20608877 (Version 3)
Quarter: 2022Q2

REPORT INFORMATION
  Report Type: Spontaneous
  Country: IE (occurrence: IE)
  Receive Date: 20220317
  Receipt Date: 20220405
  Transmission Date: 20220720
  Serious: Yes (Other)
  Sender: FDA-Public Use
  Company Number: IE-MYLANLABS-2022M1015818

PATIENT
  Age: 45 Year
  Sex: Male

DRUGS (2)
  1. CLOZARIL [Suspect]
     Active Substance: CLOZAPINE
     Indication: Schizoaffective disorder
     Dosage: UNK
  2. CLOZARIL [Suspect]
     Active Substance: CLOZAPINE
     Indication: Schizophrenia
     Dosage: UNK
     Route: 048
     Dates: start: 20220228

REACTIONS (5)
  - Eosinophilia [Recovering/Resolving]
  - Off label use [Unknown]
  - Differential white blood cell count abnormal [Unknown]
  - Constipation [Unknown]
  - Sedation [Unknown]

NARRATIVE: CASE EVENT DATE: 20220321
